FAERS Safety Report 7306074-2 (Version None)
Quarter: 2011Q1

REPORT INFORMATION
  Report Type: 
  Country: None (occurrence: None)
  Receive Date: 20110210
  Receipt Date: 20110127
  Transmission Date: 20110831
  Serious: Yes (Hospitalization)
  Sender: FDA-Public Use
  Company Number: 026287

PATIENT
  Sex: Female
  Weight: 55.6 kg

DRUGS (5)
  1. METHOTREXATE [Concomitant]
  2. LANSOPRAZOLE [Concomitant]
  3. FOLIC ACID [Concomitant]
  4. CERTOLIZUMAB PEGOL (CERTOLIZUMAB PEGOL) [Suspect]
     Indication: PSORIATIC ARTHROPATHY
     Dosage: SUBCUTANEOUS
     Route: 058
     Dates: start: 20101103
  5. MELOXICAM [Concomitant]

REACTIONS (1)
  - VULVAR DYSPLASIA [None]
